FAERS Safety Report 7124153-X (Version None)
Quarter: 2010Q4

REPORT INFORMATION
  Report Type: 
  Country: None (occurrence: None)
  Receive Date: 20101126
  Receipt Date: 20101115
  Transmission Date: 20110411
  Serious: Yes (Hospitalization, Other)
  Sender: FDA-Public Use
  Company Number: DE-ELI_LILLY_AND_COMPANY-DE201011004800

PATIENT
  Age: 64 Year
  Sex: Female

DRUGS (1)
  1. GEMCITABINE HCL [Suspect]
     Indication: ADENOCARCINOMA PANCREAS
     Dates: end: 20060601

REACTIONS (5)
  - ACUTE RESPIRATORY FAILURE [None]
  - DYSPNOEA EXERTIONAL [None]
  - HAEMOLYTIC URAEMIC SYNDROME [None]
  - HYPERTENSIVE CRISIS [None]
  - PULMONARY OEDEMA [None]
